FAERS Safety Report 9183057 (Version 1)
Quarter: 2012Q4

REPORT INFORMATION
  Report Type: 
  Country: NL (occurrence: NL)
  Receive Date: 20121030
  Receipt Date: 20121030
  Transmission Date: 20130627
  Serious: Yes (Death)
  Sender: FDA-Public Use
  Company Number: PHHY2012NL097403

PATIENT
  Age: 76 None
  Sex: Male

DRUGS (3)
  1. ZOMETA [Suspect]
     Indication: PROSTATE CANCER METASTATIC
     Dosage: 4 mg /100ml once in 84 days
  2. ZOMETA [Suspect]
     Dosage: 4 mg /100ml once in 84 days
     Dates: start: 20120618
  3. ZOMETA [Suspect]
     Dosage: 4 mg /100ml once in 84 days
     Dates: start: 20120910

REACTIONS (1)
  - Death [Fatal]
